FAERS Safety Report 13143183 (Version 10)
Quarter: 2018Q1

REPORT INFORMATION
  Report Type: Report from Study
  Country: DE (occurrence: DE)
  Receive Date: 20170123
  Receipt Date: 20180319
  Transmission Date: 20180508
  Serious: Yes (Hospitalization)
  Sender: FDA-Public Use
  Company Number: DE-AMGEN-DEUCT2017004289

PATIENT
  Age: 66 Year
  Sex: Male
  Weight: 85.6 kg

DRUGS (9)
  1. AMOXICILLIN. [Concomitant]
     Active Substance: AMOXICILLIN
     Dosage: 875 MG, UNK
     Route: 048
     Dates: start: 20161018, end: 20161028
  2. PEMBROLIZUMAB. [Suspect]
     Active Substance: PEMBROLIZUMAB
     Indication: MALIGNANT MELANOMA
     Dosage: 200 MG, UNK
     Route: 042
     Dates: start: 20160905
  3. URBASON [Concomitant]
     Active Substance: METHYLPREDNISOLONE
     Dosage: 4-20 MG, DAILY ALTERNATELY
     Route: 048
     Dates: start: 20161018, end: 20161129
  4. PANTOZOL [Concomitant]
     Active Substance: PANTOPRAZOLE SODIUM
     Dosage: 40 MG, UNK
     Route: 048
     Dates: start: 20161018, end: 20170522
  5. PEMBROLIZUMAB. [Suspect]
     Active Substance: PEMBROLIZUMAB
     Dosage: UNK
     Route: 042
     Dates: start: 20170131
  6. CARBAMAZEPIN [Concomitant]
     Active Substance: CARBAMAZEPINE
     Dosage: 600 MG, UNK
     Route: 048
     Dates: start: 201603
  7. BUDESONID [Concomitant]
     Active Substance: BUDESONIDE
     Dosage: 200 MUG, UNK
     Route: 050
     Dates: start: 20161028
  8. CLAVULANIC ACID [Concomitant]
     Active Substance: CLAVULANIC ACID
     Dosage: 125 MG, UNK
     Route: 048
     Dates: start: 20161018, end: 20161028
  9. TALIMOGENE LAHERPAREPVEC [Suspect]
     Active Substance: TALIMOGENE LAHERPAREPVEC
     Indication: MALIGNANT MELANOMA
     Dosage: UNK
     Route: 026
     Dates: start: 20160905

REACTIONS (1)
  - Pulmonary sarcoidosis [Not Recovered/Not Resolved]

NARRATIVE: CASE EVENT DATE: 20161108
